FAERS Safety Report 6492797-4 (Version None)
Quarter: 2009Q4

REPORT INFORMATION
  Report Type: 
  Country: None (occurrence: None)
  Receive Date: 20091211
  Receipt Date: 20091211
  Transmission Date: 20100525
  Serious: Yes (Other)
  Sender: FDA-Public Use
  Company Number: None

PATIENT
  Sex: Female
  Weight: 88.4514 kg

DRUGS (2)
  1. CLINDAMYCIN [Suspect]
     Indication: TOOTH EXTRACTION
     Dosage: 300 MG 1 EV 8 HRS
     Dates: start: 20091102
  2. PROPEXYPHENE [Suspect]
     Dosage: N 100 + 100 600 1 EVERY 4 HRS
     Dates: start: 20091102

REACTIONS (3)
  - DRUG HYPERSENSITIVITY [None]
  - SKIN EXFOLIATION [None]
  - THERMAL BURN [None]
